FAERS Safety Report 4953980-X (Version None)
Quarter: 2006Q1

REPORT INFORMATION
  Report Type: 
  Country: None (occurrence: None)
  Receive Date: 20060323
  Receipt Date: 20060323
  Transmission Date: 20060701
  Serious: Yes (Other)
  Sender: FDA-Public Use
  Company Number: None

PATIENT
  Sex: Female
  Weight: 54.8852 kg

DRUGS (2)
  1. BONIVA [Suspect]
     Indication: OSTEOPENIA
     Dosage: ONE PILL MONTHLY PO
     Route: 048
     Dates: start: 20060201, end: 20060301
  2. BONIVA [Suspect]
     Indication: OSTEOPOROSIS
     Dosage: ONE PILL MONTHLY PO
     Route: 048
     Dates: start: 20060201, end: 20060301

REACTIONS (12)
  - ARTHRALGIA [None]
  - ASTHENIA [None]
  - CHILLS [None]
  - FATIGUE [None]
  - HYPERHIDROSIS [None]
  - INFLUENZA LIKE ILLNESS [None]
  - MUSCLE SPASMS [None]
  - PAIN IN EXTREMITY [None]
  - PERIPHERAL COLDNESS [None]
  - PYREXIA [None]
  - SYNCOPE [None]
  - TREMOR [None]
